FAERS Safety Report 6054235-5 (Version None)
Quarter: 2009Q1

REPORT INFORMATION
  Report Type: 
  Country: None (occurrence: None)
  Receive Date: 20090127
  Receipt Date: 20090119
  Transmission Date: 20090719
  Serious: Yes (Other)
  Sender: FDA-Public Use
  Company Number: BR-JNJFOC-20090104494

PATIENT
  Age: 13 Month
  Sex: Female
  Weight: 15 kg

DRUGS (2)
  1. TOPAMAX [Suspect]
     Indication: STURGE-WEBER SYNDROME
     Route: 048
  2. TRILEPTAL [Concomitant]
     Indication: STURGE-WEBER SYNDROME

REACTIONS (3)
  - DRUG PRESCRIBING ERROR [None]
  - LIVER FUNCTION TEST ABNORMAL [None]
  - WRONG TECHNIQUE IN DRUG USAGE PROCESS [None]
